FAERS Safety Report 24243200 (Version 1)
Quarter: 2024Q3

REPORT INFORMATION
  Report Type: Spontaneous
  Country: DE (occurrence: DE)
  Receive Date: 20240823
  Receipt Date: 20240823
  Transmission Date: 20241017
  Serious: Yes (Other)
  Sender: QUAGEN PHARMACEUTICALS
  Company Number: DE-QUAGEN-2024QUALIT00245

PATIENT

DRUGS (4)
  1. LEVETIRACETAM [Suspect]
     Active Substance: LEVETIRACETAM
     Indication: Foetal exposure during pregnancy
     Route: 064
  2. LACOSAMIDE [Suspect]
     Active Substance: LACOSAMIDE
     Indication: Foetal exposure during pregnancy
     Route: 064
  3. CLOBAZAM [Suspect]
     Active Substance: CLOBAZAM
     Indication: Foetal exposure during pregnancy
     Route: 064
  4. OXCARBAZEPINE [Suspect]
     Active Substance: OXCARBAZEPINE
     Indication: Foetal exposure during pregnancy
     Route: 064

REACTIONS (3)
  - Hydronephrosis [Unknown]
  - Cryptorchism [Unknown]
  - Foetal exposure during pregnancy [Unknown]
